FAERS Safety Report 8975102 (Version 2)
Quarter: 2013Q1

REPORT INFORMATION
  Report Type: Spontaneous
  Country: CA (occurrence: CA)
  Receive Date: 20121219
  Receipt Date: 20130122
  Transmission Date: 20140127
  Serious: Yes (Death)
  Sender: FDA-Public Use
  Company Number: PHHY2011CA81975

PATIENT
  Sex: Female

DRUGS (7)
  1. ZOMETA [Suspect]
     Indication: METASTASES TO BONE
     Dosage: 4 MG, QMO
     Route: 042
     Dates: start: 20110624
  2. ZOMETA [Suspect]
     Dosage: 4 MG EVERY 4 WEEKS
     Route: 042
  3. ZOMETA [Suspect]
     Dosage: 4 MG, ONCE A MONTH
     Route: 042
     Dates: end: 20121121
  4. MORPHINE [Concomitant]
  5. CHEMOTHERAPEUTICS [Concomitant]
     Dosage: UNK
  6. FASLODEX [Concomitant]
  7. DILAUDID [Concomitant]

REACTIONS (15)
  - Breast cancer metastatic [Fatal]
  - Malignant neoplasm progression [Fatal]
  - Metastases to lung [Fatal]
  - Metastases to liver [Fatal]
  - Metastases to bone [Fatal]
  - Abdominal discomfort [Unknown]
  - Influenza like illness [Recovering/Resolving]
  - Nausea [Unknown]
  - Back pain [Unknown]
  - Anxiety [Unknown]
  - Constipation [Unknown]
  - Fatigue [Unknown]
  - Arthralgia [Unknown]
  - Dizziness [Unknown]
  - Malaise [Unknown]
